FAERS Safety Report 14446404 (Version 2)
Quarter: 2018Q2

REPORT INFORMATION
  Report Type: Spontaneous
  Country: JP (occurrence: JP)
  Receive Date: 20180126
  Receipt Date: 20180530
  Transmission Date: 20180711
  Serious: Yes (Hospitalization, Other)
  Sender: FDA-Public Use
  Company Number: JP-UNITED THERAPEUTICS-UNT-2018-001094

PATIENT
  Age: 50 Year
  Sex: Female
  Weight: 49 kg

DRUGS (1)
  1. REMODULIN [Suspect]
     Active Substance: TREPROSTINIL
     Indication: PULMONARY ARTERIAL HYPERTENSION
     Dosage: UNK
     Route: 041
     Dates: start: 20150924

REACTIONS (1)
  - Device related infection [Unknown]

NARRATIVE: CASE EVENT DATE: 201801
